FAERS Safety Report 5363154-9 (Version None)
Quarter: 2007Q2

REPORT INFORMATION
  Report Type: 
  Country: None (occurrence: None)
  Receive Date: 20070620
  Receipt Date: 20070611
  Transmission Date: 20071010
  Serious: Yes (Hospitalization)
  Sender: FDA-Public Use
  Company Number: PHBS2007DE09821

PATIENT
  Age: 30 Year
  Sex: Male
  Weight: 112 kg

DRUGS (3)
  1. CLOZAPINE [Suspect]
     Indication: SCHIZOPHRENIA, PARANOID TYPE
     Dosage: 500 MG/D
  2. CLOZAPINE [Suspect]
     Dosage: 250 MG/D
  3. CLOZAPINE [Suspect]
     Dosage: 350 MG/D

REACTIONS (4)
  - DRUG INEFFECTIVE [None]
  - EMOTIONAL DISTRESS [None]
  - OBSESSIVE-COMPULSIVE DISORDER [None]
  - PSYCHOTIC DISORDER [None]
